FAERS Safety Report 7062611 (Version 15)
Quarter: 2013Q4

REPORT INFORMATION
  Report Type: Spontaneous
  Country: US (occurrence: US)
  Receive Date: 20090724
  Receipt Date: 20131114
  Transmission Date: 20140711
  Serious: Yes (Death, Hospitalization, Other)
  Sender: FDA-Public Use
  Company Number: PHEH2009US07540

PATIENT
  Age: 50 Year
  Sex: Female

DRUGS (25)
  1. AREDIA [Suspect]
     Indication: BREAST CANCER METASTATIC
  2. AREDIA [Suspect]
     Dosage: 90 MG, QMO
     Dates: start: 20030923
  3. ZOMETA [Suspect]
     Indication: METASTASES TO BONE
     Dosage: 4 MG, QMO
     Route: 042
  4. EFFEXOR [Concomitant]
     Dosage: 75 MG, DAILY
  5. ATIVAN [Concomitant]
     Dosage: 2 MG, AT BED TIME
  6. HYDROCODONE [Concomitant]
  7. XANAX [Concomitant]
     Dosage: 0.25 MG, BID
  8. ASPIRIN ^BAYER^ [Concomitant]
  9. AMIODARONE [Concomitant]
     Dosage: 200 MG, DAILY
  10. ATENOLOL [Concomitant]
     Dosage: 25 MG, QHS
  11. LORTAB [Concomitant]
     Dosage: UNK
  12. SENNA [Concomitant]
  13. BUSPAR [Concomitant]
  14. PACERONE [Concomitant]
  15. LEVAQUIN [Concomitant]
  16. CHEMOTHERAPEUTICS [Concomitant]
  17. CODEINE [Concomitant]
  18. PHENERGAN [Concomitant]
  19. DILAUDID [Concomitant]
  20. PROPACIL [Concomitant]
  21. VISTARIL [Concomitant]
  22. ZANTAC [Concomitant]
  23. CEPACOL SORE THROAT + COUGH RELIEF LOZENGES [Concomitant]
  24. CLARITIN [Concomitant]
  25. MYLANTA (MAGNESIUM HYDROXIDE/ALUMINIUM HYDROXIDE) [Concomitant]

REACTIONS (93)
  - Breast cancer [Fatal]
  - Osteonecrosis of jaw [Unknown]
  - General physical health deterioration [Unknown]
  - Pain [Unknown]
  - Anxiety [Unknown]
  - Anhedonia [Unknown]
  - Hypothyroidism [Unknown]
  - Metastases to bone [Unknown]
  - Ventricular tachycardia [Unknown]
  - Hypertension [Unknown]
  - Depression [Unknown]
  - Altered state of consciousness [Unknown]
  - Basedow^s disease [Unknown]
  - Phlebitis [Unknown]
  - Hilar lymphadenopathy [Unknown]
  - Scar [Unknown]
  - Atelectasis [Unknown]
  - Pulmonary mass [Unknown]
  - Oedema peripheral [Unknown]
  - Weight increased [Unknown]
  - Respiratory distress [Unknown]
  - Aortic valve incompetence [Unknown]
  - Tricuspid valve incompetence [Unknown]
  - Pulmonary valve incompetence [Unknown]
  - Metastases to liver [Unknown]
  - Metastases to lung [Unknown]
  - Metastases to spine [Unknown]
  - Cellulitis [Unknown]
  - Mouth ulceration [Unknown]
  - Thrombocytopenia [Unknown]
  - Mental status changes [Recovered/Resolved]
  - Paralysis [Unknown]
  - Atrial fibrillation [Unknown]
  - Palpitations [Unknown]
  - Mitral valve prolapse [Unknown]
  - Mitral valve incompetence [Unknown]
  - Dyspnoea exertional [Unknown]
  - Presyncope [Unknown]
  - Hypokalaemia [Unknown]
  - Impaired gastric emptying [Unknown]
  - Abdominal pain [Unknown]
  - Back pain [Unknown]
  - Mucosal inflammation [Unknown]
  - Dysuria [Unknown]
  - Rash erythematous [Unknown]
  - Dizziness [Unknown]
  - Gait disturbance [Unknown]
  - Venous thrombosis [Unknown]
  - Anaemia of malignant disease [Unknown]
  - Fall [Unknown]
  - Irritable bowel syndrome [Unknown]
  - Rhinitis allergic [Unknown]
  - Bone pain [Unknown]
  - Oropharyngeal pain [Unknown]
  - Lethargy [Unknown]
  - Abdominal discomfort [Unknown]
  - Dysphagia [Unknown]
  - Urinary tract infection [Unknown]
  - Chest pain [Unknown]
  - Pleural fibrosis [Unknown]
  - Bone marrow disorder [Unknown]
  - Haematoma [Unknown]
  - Osteosclerosis [Unknown]
  - Contusion [Unknown]
  - Arthralgia [Unknown]
  - Paraplegia [Unknown]
  - Hypovolaemia [Unknown]
  - Lumbar vertebral fracture [Unknown]
  - Cartilage injury [Unknown]
  - Muscle atrophy [Unknown]
  - Joint effusion [Unknown]
  - Rib fracture [Unknown]
  - Dental caries [Unknown]
  - Kyphoscoliosis [Unknown]
  - Pulmonary oedema [Unknown]
  - Pneumonia [Unknown]
  - Amnesia [Unknown]
  - Confusional state [Unknown]
  - Bronchial hyperreactivity [Unknown]
  - Loose tooth [Unknown]
  - Osteomyelitis [Unknown]
  - Agitation [Unknown]
  - Disorientation [Unknown]
  - Spinal compression fracture [Unknown]
  - Dyspnoea [Unknown]
  - Interstitial lung disease [Unknown]
  - Lung infiltration [Unknown]
  - Bronchiectasis [Unknown]
  - Pain in extremity [Unknown]
  - Local swelling [Unknown]
  - Tendonitis [Unknown]
  - Thyroiditis [Unknown]
  - Tremor [Unknown]
